FAERS Safety Report 13640396 (Version 1)
Quarter: 2017Q2

REPORT INFORMATION
  Report Type: Spontaneous
  Country: US (occurrence: US)
  Receive Date: 20170610
  Receipt Date: 20170610
  Transmission Date: 20170830
  Serious: No
  Sender: FDA-Public Use
  Company Number: US-009507513-1705USA008356

PATIENT
  Age: 24 Year
  Sex: Female
  Weight: 68.03 kg

DRUGS (1)
  1. NEXPLANON [Suspect]
     Active Substance: ETONOGESTREL
     Indication: CONTRACEPTION
     Dosage: 1 IMPLANT, 4 YEAR IMPANT
     Route: 059
     Dates: start: 201612

REACTIONS (5)
  - Menstruation irregular [Unknown]
  - Metrorrhagia [Unknown]
  - Incorrect drug administration duration [Unknown]
  - Circumstance or information capable of leading to medication error [Unknown]
  - Metrorrhagia [Recovered/Resolved]

NARRATIVE: CASE EVENT DATE: 2017
